FAERS Safety Report 6566550-7 (Version None)
Quarter: 2010Q1

REPORT INFORMATION
  Report Type: 
  Country: None (occurrence: None)
  Receive Date: 20100127
  Receipt Date: 20100115
  Transmission Date: 20100710
  Serious: Yes (Hospitalization, Disabling)
  Sender: FDA-Public Use
  Company Number: 230192J09CAN

PATIENT
  Sex: Female

DRUGS (3)
  1. REBIF [Suspect]
     Indication: RELAPSING-REMITTING MULTIPLE SCLEROSIS
     Dosage: 44 MCG; 44 MCG, 2 IN 1 WEEKS
     Dates: start: 20000201, end: 20070119
  2. REBIF [Suspect]
     Indication: RELAPSING-REMITTING MULTIPLE SCLEROSIS
     Dosage: 44 MCG; 44 MCG, 2 IN 1 WEEKS
     Dates: start: 20090527
  3. IBUPROFEN [Concomitant]

REACTIONS (4)
  - CYSTITIS [None]
  - MULTIPLE SCLEROSIS RELAPSE [None]
  - MUSCLE SPASMS [None]
  - POST PROCEDURAL COMPLICATION [None]
